FAERS Safety Report 9258355 (Version 1)
Quarter: 2013Q2

REPORT INFORMATION
  Report Type: Spontaneous
  Country: US (occurrence: None)
  Receive Date: 20130424
  Receipt Date: 20130424
  Transmission Date: 20140414
  Serious: Yes (Other)
  Sender: FDA-Public Use
  Company Number: None

PATIENT
  Sex: Female
  Weight: 54.43 kg

DRUGS (1)
  1. PRADAXA [Suspect]
     Indication: MYELODYSPLASTIC SYNDROME
     Dosage: 1 CAPSULE
     Route: 048
     Dates: start: 2011

REACTIONS (6)
  - Gastrointestinal tract irritation [None]
  - Abdominal discomfort [None]
  - Aspiration [None]
  - Oesophageal discomfort [None]
  - Burning sensation [None]
  - Product solubility abnormal [None]
